FAERS Safety Report 4381452-2 (Version None)
Quarter: 2004Q2

REPORT INFORMATION
  Report Type: 
  Country: None (occurrence: None)
  Receive Date: 20040618
  Receipt Date: 20040618
  Transmission Date: 20050107
  Serious: No
  Sender: FDA-Public Use
  Company Number: None

PATIENT
  Age: 58 Year
  Sex: Female

DRUGS (2)
  1. ADRIAMYCIN PFS [Suspect]
  2. CYTOXAN [Suspect]

REACTIONS (13)
  - ANOREXIA [None]
  - ASTHENIA [None]
  - CHILLS [None]
  - DIZZINESS [None]
  - FATIGUE [None]
  - FEELING ABNORMAL [None]
  - HAEMATOCHEZIA [None]
  - HEADACHE [None]
  - MALAISE [None]
  - MARKEDLY REDUCED DIETARY INTAKE [None]
  - NAUSEA [None]
  - PYREXIA [None]
  - VOMITING [None]
